FAERS Safety Report 9002100 (Version 1)
Quarter: 2013Q1

REPORT INFORMATION
  Report Type: Spontaneous
  Country: CH (occurrence: CH)
  Receive Date: 20130107
  Receipt Date: 20130107
  Transmission Date: 20140127
  Serious: Yes (Other)
  Sender: FDA-Public Use
  Company Number: CH-TEVA-331484ISR

PATIENT
  Age: 30 Year
  Sex: Female

DRUGS (7)
  1. IRFEN [Suspect]
     Dosage: 800 MILLIGRAM DAILY;
     Route: 064
  2. TILUR [Suspect]
     Route: 064
  3. TRAMAL [Suspect]
     Dosage: 200 MILLIGRAM DAILY;
  4. TEMESTA [Suspect]
     Dosage: 3 MILLIGRAM DAILY;
     Route: 064
  5. TRITTICO [Suspect]
     Indication: DEPRESSION
     Dosage: 150 MILLIGRAM DAILY;
     Route: 064
  6. GYNERA [Suspect]
     Indication: ORAL CONTRACEPTION
     Dosage: 1 DOSAGE FORMS DAILY;
     Route: 064
  7. FRAXIPARINE [Concomitant]
     Dosage: .4 ML DAILY;
     Route: 064
     Dates: end: 20120229

REACTIONS (3)
  - Exposure during pregnancy [Recovered/Resolved]
  - Pregnancy on oral contraceptive [Recovered/Resolved]
  - Foetal death [Unknown]
